FAERS Safety Report 7496345-1 (Version None)
Quarter: 2011Q2

REPORT INFORMATION
  Report Type: 
  Country: None (occurrence: None)
  Receive Date: 20110523
  Receipt Date: 20110516
  Transmission Date: 20111010
  Serious: Yes (Death, Other)
  Sender: FDA-Public Use
  Company Number: DE-ELI_LILLY_AND_COMPANY-DE201105004855

PATIENT
  Age: 15 Year
  Sex: Male

DRUGS (5)
  1. SODIUM CHLORIDE [Concomitant]
     Indication: PROPHYLAXIS
     Dosage: 0.45 %, UNKNOWN
     Route: 065
  2. GEMCITABINE HYDROCHLORIDE [Suspect]
     Indication: PRIMITIVE NEUROECTODERMAL TUMOUR METASTATIC
     Dosage: 1000 MG/M2, EVERY HALF HOUR ON DAY 1 AND 8
     Route: 042
  3. GLUCOSE [Concomitant]
     Indication: PROPHYLAXIS
     Dosage: 5 %, AT 3L/M2/D OTHER
     Route: 065
  4. IRINOTECAN HYDROCHLORIDE [Concomitant]
     Indication: PRIMITIVE NEUROECTODERMAL TUMOUR METASTATIC
     Dosage: 175 MG/M2, EVERY TWO HOURS
     Route: 042
  5. OXALIPLATIN [Concomitant]
     Indication: PRIMITIVE NEUROECTODERMAL TUMOUR METASTATIC
     Dosage: 85 MG/M2, EVERY TWO HOURS
     Route: 042

REACTIONS (3)
  - DEATH [None]
  - HAEMATOTOXICITY [None]
  - C-REACTIVE PROTEIN INCREASED [None]
